FAERS Safety Report 18866435 (Version 3)
Quarter: 2021Q2

REPORT INFORMATION
  Report Type: Report from Study
  Country: UY (occurrence: UY)
  Receive Date: 20210209
  Receipt Date: 20210518
  Transmission Date: 20210717
  Serious: Yes (Hospitalization, Other)
  Sender: FDA-Public Use
  Company Number: UY-TAKEDA-2021TUS005354

PATIENT
  Age: 15 Year
  Sex: Female

DRUGS (4)
  1. ICATIBANT [Suspect]
     Active Substance: ICATIBANT ACETATE
     Indication: HEREDITARY ANGIOEDEMA
  2. ICATIBANT [Suspect]
     Active Substance: ICATIBANT ACETATE
     Indication: HEREDITARY ANGIOEDEMA
  3. ICATIBANT [Suspect]
     Active Substance: ICATIBANT ACETATE
     Indication: OEDEMA
     Dosage: 30 MILLIGRAM, PRN (1 PREFILLED SYRINGE IN CRISIS)
     Route: 058
     Dates: start: 20210113
  4. ICATIBANT [Suspect]
     Active Substance: ICATIBANT ACETATE
     Indication: OEDEMA
     Dosage: 30 MILLIGRAM, PRN (1 PREFILLED SYRINGE IN CRISIS)
     Route: 058
     Dates: start: 20210113

REACTIONS (7)
  - Stress [Recovered/Resolved]
  - Syncope [Unknown]
  - Pain [Recovered/Resolved]
  - Hemiplegia [Unknown]
  - Hereditary angioedema [Recovered/Resolved]
  - Vomiting [Recovering/Resolving]
  - Infusion site pain [Recovered/Resolved]

NARRATIVE: CASE EVENT DATE: 20210121
